FAERS Safety Report 5579105-8 (Version None)
Quarter: 2007Q4

REPORT INFORMATION
  Report Type: 
  Country: None (occurrence: None)
  Receive Date: 20071228
  Receipt Date: 20071228
  Transmission Date: 20080405
  Serious: Yes (Other)
  Sender: FDA-Public Use
  Company Number: None

PATIENT
  Age: 49 Year
  Sex: Female
  Weight: 88 kg

DRUGS (10)
  1. IOPAMIDOL-370 [Suspect]
     Indication: CATHETERISATION CARDIAC
     Dosage: 120 ML ONCE IV
     Route: 042
     Dates: start: 20071201, end: 20071201
  2. VALIUM [Concomitant]
  3. MORPHINE [Concomitant]
  4. CLOPIDOGREL [Concomitant]
  5. SIMVASTATIN [Concomitant]
  6. EZETIMIBE [Concomitant]
  7. CETIRIZINE HCL [Concomitant]
  8. PANTOPRAZOLE SODIUM [Concomitant]
  9. POLYETHYLENE GLYCOL [Concomitant]
  10. ASPIRIN [Concomitant]

REACTIONS (2)
  - DRUG INTOLERANCE [None]
  - ELECTROCARDIOGRAM ST SEGMENT ELEVATION [None]
